FAERS Safety Report 6966935-0 (Version None)
Quarter: 2010Q3

REPORT INFORMATION
  Report Type: 
  Country: None (occurrence: None)
  Receive Date: 20100906
  Receipt Date: 20100528
  Transmission Date: 20110219
  Serious: No
  Sender: FDA-Public Use
  Company Number: US-ALLERGAN-1007045US

PATIENT

DRUGS (2)
  1. ACZONE [Suspect]
     Indication: PRODUCT USED FOR UNKNOWN INDICATION
     Dosage: UNK
  2. DORYX [Concomitant]

REACTIONS (3)
  - CORNEAL DISORDER [None]
  - EYE DISORDER [None]
  - KERATITIS [None]
